FAERS Safety Report 6058368-9 (Version None)
Quarter: 2009Q1

REPORT INFORMATION
  Report Type: 
  Country: None (occurrence: None)
  Receive Date: 20090127
  Receipt Date: 20090113
  Transmission Date: 20090719
  Serious: Yes (Other)
  Sender: FDA-Public Use
  Company Number: ES-2009-00082

PATIENT
  Age: 83 Year
  Sex: Female

DRUGS (2)
  1. NAVELBINE [Suspect]
     Indication: NON-SMALL CELL LUNG CANCER
     Dosage: 370 MG IV
     Route: 042
     Dates: start: 20090113, end: 20090113
  2. GEMCITABINE [Concomitant]

REACTIONS (4)
  - ACCIDENTAL OVERDOSE [None]
  - DIARRHOEA [None]
  - INCORRECT DOSE ADMINISTERED [None]
  - VOMITING [None]
